FAERS Safety Report 20882152 (Version 1)
Quarter: 2022Q2

REPORT INFORMATION
  Report Type: Other
  Country: US (occurrence: None)
  Receive Date: 20220527
  Receipt Date: 20220527
  Transmission Date: 20220721
  Serious: Yes (Other)
  Sender: FDA-Public Use
  Company Number: US-ROCHE-3097153

PATIENT
  Sex: Male

DRUGS (1)
  1. OCREVUS [Suspect]
     Active Substance: OCRELIZUMAB
     Indication: Multiple sclerosis
     Dosage: (PRESCRIBED AS INFUSE 300 MG IN DAY 1 AND 15 THEN 600 MG EVERY 6 MONTHS); DATE OF TREATMENT: 20/MAY/
     Route: 065

REACTIONS (4)
  - Dysstasia [Not Recovered/Not Resolved]
  - Amnesia [Not Recovered/Not Resolved]
  - Urinary tract infection [Not Recovered/Not Resolved]
  - Drug ineffective [Unknown]
